FAERS Safety Report 10512328 (Version 2)
Quarter: 2015Q1

REPORT INFORMATION
  Report Type: Spontaneous
  Country: CZ (occurrence: CZ)
  Receive Date: 20141010
  Receipt Date: 20150114
  Transmission Date: 20150720
  Serious: Yes (Life-Threatening)
  Sender: FDA-Public Use
  Company Number: CZ-ABBVIE-14P-217-1294215-00

PATIENT
  Sex: Male

DRUGS (4)
  1. PHENOBARBITAL. [Suspect]
     Active Substance: PHENOBARBITAL
     Indication: NEONATAL ASPHYXIA
     Route: 065
  2. VALPROATE SALT [Suspect]
     Active Substance: VALPROATE SODIUM
     Indication: NEONATAL ASPHYXIA
     Route: 065
  3. VALPROATE SALT [Suspect]
     Active Substance: VALPROATE SODIUM
     Indication: SEIZURE
  4. PHENOBARBITAL. [Suspect]
     Active Substance: PHENOBARBITAL
     Indication: SEIZURE

REACTIONS (4)
  - Liver disorder [Recovered/Resolved with Sequelae]
  - Hyperammonaemia [Unknown]
  - Product use issue [Unknown]
  - Drug level increased [Unknown]
